FAERS Safety Report 9373911 (Version 2)
Quarter: 2013Q3

REPORT INFORMATION
  Report Type: Spontaneous
  Country: NL (occurrence: NL)
  Receive Date: 20130628
  Receipt Date: 20130930
  Transmission Date: 20140515
  Serious: Yes (Life-Threatening, Hospitalization, Other)
  Sender: FDA-Public Use
  Company Number: NL-009507513-1306NLD013360

PATIENT
  Age: 64 Year
  Sex: Female

DRUGS (3)
  1. SIMVASTATIN [Suspect]
     Indication: HYPERCHOLESTEROLAEMIA
     Dosage: 20 MG, QD
     Dates: start: 201206, end: 20130619
  2. METOPROLOL [Concomitant]
     Dosage: 50 MG, BID
  3. SEVIKAR [Concomitant]
     Dosage: 1 DF, QD
     Route: 048

REACTIONS (1)
  - Pancreatitis necrotising [Recovering/Resolving]
